FAERS Safety Report 20033547 (Version 1)
Quarter: 2021Q4

REPORT INFORMATION
  Report Type: Report from Study
  Country: JP (occurrence: JP)
  Receive Date: 20211104
  Receipt Date: 20211104
  Transmission Date: 20220303
  Serious: Yes (Life-Threatening, Hospitalization, Disabling, Other)
  Sender: FDA-Public Use
  Company Number: JP-RECORDATI RARE DISEASE INC.-2021004483

PATIENT
  Age: 7 Day
  Sex: Female
  Weight: .809 kg

DRUGS (52)
  1. NEOPROFEN [Suspect]
     Active Substance: IBUPROFEN LYSINE
     Indication: Patent ductus arteriosus
     Dosage: 8 MILLIGRAM
     Route: 042
     Dates: start: 20201002, end: 20201002
  2. NEOPROFEN [Suspect]
     Active Substance: IBUPROFEN LYSINE
     Dosage: 4 MILLIGRAM
     Route: 042
     Dates: start: 20201003, end: 20201003
  3. NEOPROFEN [Suspect]
     Active Substance: IBUPROFEN LYSINE
     Dosage: 4 MILLIGRAM
     Route: 042
     Dates: start: 20201004, end: 20201004
  4. NEOPROFEN [Suspect]
     Active Substance: IBUPROFEN LYSINE
     Dosage: 8 MILLIGRAM
     Route: 042
     Dates: start: 20201028, end: 20201028
  5. NEOPROFEN [Suspect]
     Active Substance: IBUPROFEN LYSINE
     Dosage: 4 MILLIGRAM
     Route: 042
     Dates: start: 20201029, end: 20201029
  6. NEOPROFEN [Suspect]
     Active Substance: IBUPROFEN LYSINE
     Dosage: 4 MILLIGRAM
     Route: 042
     Dates: start: 20201030, end: 20201030
  7. NEOPROFEN [Suspect]
     Active Substance: IBUPROFEN LYSINE
     Dosage: 11 MILLIGRAM
     Route: 042
     Dates: start: 20201101, end: 20201101
  8. OTSUKA NORMAL SALINE [Concomitant]
     Indication: Hyponatraemia
     Dosage: UNK
     Route: 042
     Dates: start: 20200930, end: 20201119
  9. OTSUKA NORMAL SALINE [Concomitant]
     Indication: Catheter management
  10. HEPARIN SODIUM [Concomitant]
     Active Substance: HEPARIN SODIUM
     Indication: Prophylaxis
     Dosage: UNK
     Route: 042
     Dates: start: 20200928, end: 20201119
  11. OTSUKA GLUCOSE [Concomitant]
     Indication: Hypoglycaemia
     Dosage: UNK
     Route: 042
     Dates: start: 20200929, end: 20201116
  12. OTSUKA GLUCOSE [Concomitant]
     Indication: Parenteral nutrition
  13. OTSUKA SODIUM CHLORIDE [Concomitant]
     Indication: Hyponatraemia
     Dosage: UNK
     Route: 042
     Dates: start: 20200929, end: 20201116
  14. P32 SODIUM PHOSPHATE [Concomitant]
     Active Substance: PHOSPHORUS P-32
     Indication: Hyponatraemia
     Dosage: UNK
     Route: 042
     Dates: start: 20201001, end: 20201116
  15. P32 SODIUM PHOSPHATE [Concomitant]
     Active Substance: PHOSPHORUS P-32
     Indication: Parenteral nutrition
  16. POTASSIUM ASPARTATE [Concomitant]
     Active Substance: POTASSIUM ASPARTATE
     Indication: Hypokalaemia
     Dosage: UNK
     Route: 042
     Dates: start: 20201002, end: 20201116
  17. POTASSIUM ASPARTATE [Concomitant]
     Active Substance: POTASSIUM ASPARTATE
     Indication: Parenteral nutrition
  18. PLEAMIN P [Concomitant]
     Indication: Parenteral nutrition
     Dosage: UNK
     Route: 042
     Dates: start: 20200930, end: 20201116
  19. VITAJECT [VITAMINS NOS] [Concomitant]
     Indication: Parenteral nutrition
     Dosage: UNK
     Route: 042
     Dates: start: 20200930, end: 20201116
  20. ELEJECT [Concomitant]
     Indication: Parenteral nutrition
     Dosage: UNK
     Route: 042
     Dates: start: 20200930, end: 20201116
  21. WATER FOR INJECTION [Concomitant]
     Active Substance: WATER
     Indication: Parenteral nutrition
     Dosage: UNK
     Route: 042
     Dates: start: 20200929, end: 20201116
  22. SOYBEAN OIL [Concomitant]
     Active Substance: SOYBEAN OIL
     Indication: Parenteral nutrition
     Dosage: UNK
     Route: 042
     Dates: start: 20201002, end: 20201008
  23. DOPAMINE HYDROCHLORIDE [Concomitant]
     Active Substance: DOPAMINE HYDROCHLORIDE
     Indication: Hypotension
     Dosage: UNK
     Route: 042
     Dates: start: 20200929, end: 20201108
  24. DOBUTAMINE [Concomitant]
     Active Substance: DOBUTAMINE HYDROCHLORIDE
     Indication: Hypotension
     Dosage: UNK
     Route: 042
     Dates: start: 20200929, end: 20201017
  25. CALCIUM GLUCONATE [Concomitant]
     Active Substance: CALCIUM GLUCONATE
     Indication: Hypocalcaemia
     Dosage: UNK
     Route: 042
     Dates: start: 20200929, end: 20201101
  26. PITRESSIN [Concomitant]
     Active Substance: VASOPRESSIN
     Indication: Hypotension
     Dosage: UNK
     Route: 042
     Dates: start: 20200930, end: 20201003
  27. OTSUKA GLUCOSE 20% [Concomitant]
     Indication: Hypotension
     Dosage: UNK
     Route: 042
     Dates: start: 20200929, end: 20201108
  28. AMPICILLIN SODIUM [Concomitant]
     Active Substance: AMPICILLIN SODIUM
     Indication: Infection prophylaxis
     Dosage: UNK
     Route: 042
     Dates: start: 20200928, end: 20201004
  29. GENTAMICIN SULFATE [Concomitant]
     Active Substance: GENTAMICIN SULFATE
     Indication: Infection prophylaxis
     Dosage: UNK
     Route: 042
     Dates: start: 20200928, end: 20201005
  30. PHENOBARBITAL SODIUM [Concomitant]
     Active Substance: PHENOBARBITAL SODIUM
     Indication: Haemorrhage intracranial
     Dosage: UNK
     Route: 042
     Dates: start: 20200929, end: 20201117
  31. PHENOBARBITAL SODIUM [Concomitant]
     Active Substance: PHENOBARBITAL SODIUM
     Indication: Cerebellar haemorrhage
  32. PHENOBARBITAL SODIUM [Concomitant]
     Active Substance: PHENOBARBITAL SODIUM
     Indication: Sedation
  33. PHENOBARBITAL SODIUM [Concomitant]
     Active Substance: PHENOBARBITAL SODIUM
     Indication: Seizure
  34. MENATETRENONE [Concomitant]
     Active Substance: MENATETRENONE
     Indication: Vitamin supplementation
     Dosage: UNK
     Route: 042
     Dates: start: 20200928, end: 20201002
  35. MENATETRENONE [Concomitant]
     Active Substance: MENATETRENONE
     Indication: Haemorrhage prophylaxis
  36. MARTOS [Concomitant]
     Indication: Catheter management
     Dosage: UNK
     Route: 042
     Dates: start: 20201003, end: 20201105
  37. PRECEDEX [Concomitant]
     Active Substance: DEXMEDETOMIDINE HYDROCHLORIDE
     Indication: Sedation
     Dosage: UNK
     Route: 042
     Dates: start: 20201015, end: 20201029
  38. FUROSEMIDE [Concomitant]
     Active Substance: FUROSEMIDE
     Indication: Renal impairment
     Dosage: UNK
     Route: 042
     Dates: start: 20201010, end: 20201116
  39. DEHYDROCHOLIC ACID [Concomitant]
     Active Substance: DEHYDROCHOLIC ACID
     Indication: Cholestasis
     Dosage: UNK
     Route: 042
     Dates: start: 20201019, end: 20201116
  40. LEVOCARNITINE [Concomitant]
     Active Substance: LEVOCARNITINE
     Indication: Carnitine deficiency
     Dosage: UNK
     Route: 042
     Dates: start: 20201024, end: 20201119
  41. FLUCONAZOLE [Concomitant]
     Active Substance: FLUCONAZOLE
     Indication: Gastrointestinal perforation
     Dosage: UNK
     Route: 042
     Dates: start: 20201008, end: 20201102
  42. FLUCONAZOLE [Concomitant]
     Active Substance: FLUCONAZOLE
     Indication: Peritonitis
  43. FLUCONAZOLE [Concomitant]
     Active Substance: FLUCONAZOLE
     Indication: Intestinal fistula
  44. MEROPENEM [Concomitant]
     Active Substance: MEROPENEM
     Indication: Gastrointestinal perforation
     Dosage: UNK
     Route: 042
     Dates: start: 20201008, end: 20201102
  45. MEROPENEM [Concomitant]
     Active Substance: MEROPENEM
     Indication: Peritonitis
  46. MEROPENEM [Concomitant]
     Active Substance: MEROPENEM
     Indication: Intestinal fistula
  47. VANCOMYCIN HYDROCHLORIDE [Concomitant]
     Active Substance: VANCOMYCIN HYDROCHLORIDE
     Indication: Gastrointestinal perforation
     Dosage: UNK
     Route: 042
     Dates: start: 20201008, end: 20201102
  48. VANCOMYCIN HYDROCHLORIDE [Concomitant]
     Active Substance: VANCOMYCIN HYDROCHLORIDE
     Indication: Peritonitis
  49. VANCOMYCIN HYDROCHLORIDE [Concomitant]
     Active Substance: VANCOMYCIN HYDROCHLORIDE
     Indication: Intestinal fistula
  50. LEVOTHYROXINE SODIUM [Concomitant]
     Active Substance: LEVOTHYROXINE SODIUM
     Indication: Hypothyroidism
     Dosage: UNK
     Route: 048
     Dates: start: 20201008, end: 20201102
  51. OMEGAVEN [FISH OIL;GLYCEROL;PHOSPHOLIPIDS EGG] [Concomitant]
     Indication: Cholestasis
     Dosage: UNK
     Route: 042
     Dates: start: 20201020, end: 20201116
  52. MAGNESIUM SULFATE [Concomitant]
     Active Substance: MAGNESIUM SULFATE
     Indication: Hypomagnesaemia
     Dosage: UNK
     Route: 042
     Dates: start: 20201030, end: 20201031

REACTIONS (21)
  - Meconium ileus [Unknown]
  - Peritonitis [Recovered/Resolved]
  - Fistula of small intestine [Recovered/Resolved]
  - Chronic respiratory disease [Recovering/Resolving]
  - Metabolic acidosis [Recovering/Resolving]
  - Disseminated intravascular coagulation [Recovered/Resolved]
  - Septic shock [Recovered/Resolved]
  - Retinopathy of prematurity [Recovering/Resolving]
  - Hepatic haemorrhage [Recovering/Resolving]
  - Pulmonary oedema [Recovering/Resolving]
  - Haemorrhage intracranial [Recovered/Resolved with Sequelae]
  - Gastrointestinal perforation [Recovered/Resolved]
  - Cerebellar haemorrhage [Recovered/Resolved with Sequelae]
  - Renal impairment [Recovering/Resolving]
  - Sepsis [Recovered/Resolved]
  - Hypomagnesaemia [Recovered/Resolved]
  - Hypothyroidism [Recovering/Resolving]
  - Atelectasis [Recovered/Resolved]
  - Cholestasis [Recovering/Resolving]
  - Infantile apnoea [Recovered/Resolved]
  - Abdominal distension [Unknown]

NARRATIVE: CASE EVENT DATE: 20201005
